FAERS Safety Report 4384186-3 (Version None)
Quarter: 2004Q2

REPORT INFORMATION
  Report Type: 
  Country: None (occurrence: None)
  Receive Date: 20040618
  Receipt Date: 20040605
  Transmission Date: 20050107
  Serious: Yes (Other)
  Sender: FDA-Public Use
  Company Number: 2004021068

PATIENT
  Age: 70 Year
  Sex: Male
  Weight: 74.8435 kg

DRUGS (5)
  1. LIPITOR [Suspect]
     Indication: BLOOD CHOLESTEROL
     Dosage: 20 MG, DAILY, ORAL
     Route: 048
     Dates: start: 19970910
  2. FINASTERIDE [Suspect]
     Indication: BENIGN PROSTATIC HYPERPLASIA
     Dates: end: 20040301
  3. IMMUNOSUPPRESIVE AGENTS (IMMUNOSUPPRESSIVE AGENTS) [Suspect]
     Indication: RENAL TRANSPLANT
     Dates: start: 19840810
  4. CYCLOSPORINE [Concomitant]
  5. SILDENAFIL CITRATE (SILDENAFIL CITRATE) [Concomitant]

REACTIONS (18)
  - 17 KETOSTEROIDS URINE DECREASED [None]
  - AUTONOMIC NEUROPATHY [None]
  - CEREBROVASCULAR DISORDER [None]
  - CONFUSIONAL STATE [None]
  - CREATINE URINE DECREASED [None]
  - DIZZINESS [None]
  - ERECTILE DYSFUNCTION [None]
  - HYPOREFLEXIA [None]
  - HYPOTENSION [None]
  - INSOMNIA [None]
  - MEMORY IMPAIRMENT [None]
  - NOCTURIA [None]
  - ONYCHOMYCOSIS [None]
  - ORTHOSTATIC HYPOTENSION [None]
  - URTICARIA [None]
  - VERTEBROBASILAR INSUFFICIENCY [None]
  - VISION BLURRED [None]
  - VISUAL ACUITY REDUCED [None]
